FAERS Safety Report 15803969 (Version 1)
Quarter: 2019Q1

REPORT INFORMATION
  Report Type: Spontaneous
  Country: GB (occurrence: GB)
  Receive Date: 20190109
  Receipt Date: 20190109
  Transmission Date: 20190417
  Serious: Yes (Death)
  Sender: FDA-Public Use
  Company Number: GB-MYLANLABS-2019M1001577

PATIENT
  Age: 38 Year
  Sex: Female
  Weight: 88 kg

DRUGS (6)
  1. LAMOTRIGINE. [Suspect]
     Active Substance: LAMOTRIGINE
     Indication: DISRUPTIVE MOOD DYSREGULATION DISORDER
     Dosage: 400 MILLIGRAM, QD
     Route: 048
     Dates: end: 20180105
  2. PREGABALIN MYLAN [Suspect]
     Active Substance: PREGABALIN
     Indication: ANXIETY
     Dosage: 900 MILLIGRAM, QD
     Route: 048
     Dates: end: 20180105
  3. LORAZEPAM. [Suspect]
     Active Substance: LORAZEPAM
     Indication: ANXIETY
     Dosage: AT NIGHT
     Route: 048
     Dates: end: 20180105
  4. NUROFEN PLUS [Suspect]
     Active Substance: CODEINE PHOSPHATE\IBUPROFEN
     Indication: PRODUCT USED FOR UNKNOWN INDICATION
     Dosage: UNK
     Route: 048
     Dates: end: 20180105
  5. VENLAFAXINE [Suspect]
     Active Substance: VENLAFAXINE HYDROCHLORIDE
     Indication: DEPRESSION
     Dosage: 225 MILLIGRAM, QD
     Route: 048
     Dates: end: 20180105
  6. QUETIAPINE. [Suspect]
     Active Substance: QUETIAPINE
     Indication: MOOD SWINGS
     Dosage: AT NIGHT
     Route: 048
     Dates: end: 20180105

REACTIONS (2)
  - Self-medication [Unknown]
  - Cardio-respiratory arrest [Fatal]
